FAERS Safety Report 17790741 (Version 1)
Quarter: 2020Q2

REPORT INFORMATION
  Report Type: Report from Study
  Country: None (occurrence: US)
  Receive Date: 20200514
  Receipt Date: 20200514
  Transmission Date: 20200714
  Serious: Yes (Other)
  Sender: FDA-Public Use
  Company Number: US-ABBVIE-20K-163-3402206-00

PATIENT
  Age: 76 Year
  Sex: Female
  Weight: 44.04 kg

DRUGS (2)
  1. CREON [Suspect]
     Active Substance: PANCRELIPASE AMYLASE\PANCRELIPASE LIPASE\PANCRELIPASE PROTEASE
     Dosage: ONE CREON PER MEAL AND 1 CREON PER SNACK
     Route: 048
     Dates: start: 202003
  2. CREON [Suspect]
     Active Substance: PANCRELIPASE AMYLASE\PANCRELIPASE LIPASE\PANCRELIPASE PROTEASE
     Indication: PANCREATITIS
     Route: 048
     Dates: start: 202003, end: 202003

REACTIONS (2)
  - Arterial occlusive disease [Not Recovered/Not Resolved]
  - Incorrect dose administered [Recovered/Resolved]

NARRATIVE: CASE EVENT DATE: 202003
